FAERS Safety Report 22181145 (Version 1)
Quarter: 2023Q2

REPORT INFORMATION
  Report Type: Spontaneous
  Country: US (occurrence: None)
  Receive Date: 20230405
  Receipt Date: 20230405
  Transmission Date: 20230722
  Serious: Yes (Hospitalization)
  Sender: FDA-Public Use
  Company Number: None

PATIENT
  Age: 57 Year
  Sex: Female
  Weight: 69.75 kg

DRUGS (24)
  1. OZEMPIC [Suspect]
     Active Substance: SEMAGLUTIDE
     Indication: Weight control
     Dosage: ONCE WEEKLY  SUBCUTANEOUS?
     Route: 058
  2. GABAPENTIN [Concomitant]
     Active Substance: GABAPENTIN
  3. FLUDROCORTISONE [Concomitant]
     Active Substance: FLUDROCORTISONE
  4. PLAQUENIL [Concomitant]
     Active Substance: HYDROXYCHLOROQUINE SULFATE
  5. solifenicin [Concomitant]
  6. IMIPRAMINE [Concomitant]
     Active Substance: IMIPRAMINE
  7. MIDODRINE [Concomitant]
     Active Substance: MIDODRINE
  8. PRAVASTATIN [Concomitant]
     Active Substance: PRAVASTATIN
  9. DULOXETINE [Concomitant]
     Active Substance: DULOXETINE
  10. metropolis succ [Concomitant]
  11. SERTRALINE [Concomitant]
     Active Substance: SERTRALINE HYDROCHLORIDE
  12. TRAMADOL [Concomitant]
     Active Substance: TRAMADOL
  13. BACLOFEN [Concomitant]
     Active Substance: BACLOFEN
  14. Temazeam [Concomitant]
  15. ISRADIPINE [Concomitant]
     Active Substance: ISRADIPINE
  16. VITAMIN D [Concomitant]
     Active Substance: VITAMIN D NOS
  17. C [Concomitant]
  18. MAGNESIUM [Concomitant]
     Active Substance: MAGNESIUM
  19. CALCIUM [Concomitant]
     Active Substance: CALCIUM
  20. COENZYME Q10 [Concomitant]
     Active Substance: DIETARY SUPPLEMENT\UBIDECARENONE
  21. FISH OIL [Concomitant]
     Active Substance: FISH OIL
  22. Glucosomin [Concomitant]
  23. PROBIOTICS NOS [Concomitant]
     Active Substance: PROBIOTICS NOS
  24. ASPIRIN [Concomitant]
     Active Substance: ASPIRIN

REACTIONS (4)
  - Vomiting [None]
  - Insomnia [None]
  - Parosmia [None]
  - Dehydration [None]

NARRATIVE: CASE EVENT DATE: 20230314
